FAERS Safety Report 8437082-6 (Version None)
Quarter: 2012Q2

REPORT INFORMATION
  Report Type: 
  Country: None (occurrence: None)
  Receive Date: 20120614
  Receipt Date: 20120403
  Transmission Date: 20120825
  Serious: No
  Sender: FDA-Public Use
  Company Number: US-AMGEN-USASP2011048291

PATIENT
  Age: 55 Year
  Sex: Female
  Weight: 55.782 kg

DRUGS (5)
  1. XANAX [Concomitant]
     Dosage: UNK
  2. SIMVASTATIN [Concomitant]
     Dosage: UNK
  3. LOSARTAN POTASSIUM [Concomitant]
     Dosage: UNK
  4. PROLIA [Suspect]
     Indication: OSTEOPOROSIS POSTMENOPAUSAL
     Dosage: 60 MG, Q6MO
     Dates: start: 20110701
  5. OMEPRAZOLE [Concomitant]
     Dosage: UNK

REACTIONS (5)
  - INSOMNIA [None]
  - OEDEMA PERIPHERAL [None]
  - MYALGIA [None]
  - MUSCULAR WEAKNESS [None]
  - ARTHRALGIA [None]
